FAERS Safety Report 6579577-6 (Version None)
Quarter: 2010Q1

REPORT INFORMATION
  Report Type: 
  Country: None (occurrence: None)
  Receive Date: 20100212
  Receipt Date: 20100203
  Transmission Date: 20100710
  Serious: Yes (Disabling)
  Sender: FDA-Public Use
  Company Number: GB-PFIZER INC-2010014118

PATIENT
  Age: 49 Year
  Sex: Male
  Weight: 85 kg

DRUGS (3)
  1. ATORVASTATIN CALCIUM [Suspect]
     Indication: BLOOD CHOLESTEROL INCREASED
     Dosage: 40 MG, UNK
     Route: 048
     Dates: start: 20040501, end: 20040701
  2. ACETYLSALICYLIC ACID [Concomitant]
     Dosage: 75 MG, UNK
     Route: 048
  3. CETIRIZINE [Concomitant]
     Dosage: UNK
     Route: 048

REACTIONS (3)
  - ANAEMIA [None]
  - HEPATITIS [None]
  - THROMBOCYTOPENIA [None]
